FAERS Safety Report 14859404 (Version 4)
Quarter: 2018Q3

REPORT INFORMATION
  Report Type: Spontaneous
  Country: DE (occurrence: DE)
  Receive Date: 20180508
  Receipt Date: 20180805
  Transmission Date: 20181010
  Serious: Yes (Other)
  Sender: FDA-Public Use
  Company Number: PHHY2018DE002316

PATIENT
  Age: 77 Year
  Sex: Male
  Weight: 85 kg

DRUGS (14)
  1. TORASEMID HEXAL [Concomitant]
     Indication: HYPERTENSION
     Dosage: 25 MG, UNK
     Route: 048
  2. SIMVASTATIN. [Concomitant]
     Active Substance: SIMVASTATIN
     Indication: HYPERCHOLESTEROLAEMIA
     Dosage: 40 MG, UNK USE 2 YEARS
     Route: 048
  3. ENTRESTO [Suspect]
     Active Substance: SACUBITRIL\VALSARTAN
     Dosage: 200 MG (97/103 MG), UNK
     Route: 048
     Dates: end: 20180108
  4. ELIQUIS [Suspect]
     Active Substance: APIXABAN
     Indication: ATRIAL FIBRILLATION
     Dosage: 5 MG, UNK
     Route: 048
     Dates: end: 20180112
  5. ENTRESTO [Suspect]
     Active Substance: SACUBITRIL\VALSARTAN
     Dosage: UNK
     Route: 048
     Dates: start: 20180108, end: 20180119
  6. ENTRESTO [Suspect]
     Active Substance: SACUBITRIL\VALSARTAN
     Indication: CARDIAC FAILURE
     Dosage: 100 MG (49/51 MG), UNK
     Route: 048
  7. METFORMIN [Concomitant]
     Active Substance: METFORMIN HYDROCHLORIDE
     Indication: DIABETES MELLITUS
     Dosage: 1000 MG, UNK USE 2.5 YEARS
     Route: 048
  8. ELIQUIS [Suspect]
     Active Substance: APIXABAN
     Indication: CEREBROVASCULAR ACCIDENT PROPHYLAXIS
  9. HCT 1 A PHARMA [Concomitant]
     Active Substance: HYDROCHLOROTHIAZIDE
     Indication: HYPERTENSION
     Dosage: 25 MG, UNK USE 3.5 YEARS
     Route: 048
  10. ALLOPURINOL. [Concomitant]
     Active Substance: ALLOPURINOL
     Indication: GOUT
     Dosage: 100 MG, UNK USE 3 MONTH
     Route: 065
  11. ELIQUIS [Suspect]
     Active Substance: APIXABAN
     Indication: CEREBROVASCULAR ACCIDENT PROPHYLAXIS
  12. METOPROLOL SUCCINATE. [Concomitant]
     Active Substance: METOPROLOL SUCCINATE
     Indication: HYPERTENSION
     Dosage: 47.5 MG, UNK USE 2 MONTH
     Route: 048
  13. OPIPRAMOL [Concomitant]
     Active Substance: OPIPRAMOL
     Indication: GOUT
  14. OPIPRAMOL [Concomitant]
     Active Substance: OPIPRAMOL
     Indication: GENERALISED ANXIETY DISORDER
     Dosage: 100 MG, UNK USE 2 YEARS
     Route: 048

REACTIONS (2)
  - Cholestasis [Recovered/Resolved]
  - Pruritus [Recovered/Resolved]

NARRATIVE: CASE EVENT DATE: 20170816
